FAERS Safety Report 4370715-2 (Version None)
Quarter: 2004Q2

REPORT INFORMATION
  Report Type: 
  Country: None (occurrence: None)
  Receive Date: 20040601
  Receipt Date: 20040518
  Transmission Date: 20050107
  Serious: Yes (Hospitalization, Other)
  Sender: FDA-Public Use
  Company Number: NLWYE770619MAY04

PATIENT
  Age: 53 Year
  Sex: Female

DRUGS (6)
  1. MINOCIN [Suspect]
     Dosage: 100 MG 1X PER 1 DAY ORAL
     Route: 048
     Dates: start: 19990708, end: 19990804
  2. MINOCIN [Suspect]
     Dosage: 100 MG 1X PER 1 DAY ORAL
     Route: 048
     Dates: start: 19990816, end: 19990819
  3. DEVARON (COLECALCIFEROL) [Concomitant]
  4. PLAQUENIL [Concomitant]
  5. HOMOPATIC PREPARATION (HOMEOPATIC PREPARATION) [Concomitant]
  6. PREDNISOLONE (PERDNISOLONE) [Concomitant]

REACTIONS (7)
  - ALPHA 1 GLOBULIN INCREASED [None]
  - ALPHA 2 GLOBULIN INCREASED [None]
  - BLOOD ALBUMIN DECREASED [None]
  - CONDITION AGGRAVATED [None]
  - IMMUNOGLOBULINS INCREASED [None]
  - SLEEP DISORDER [None]
  - SYSTEMIC LUPUS ERYTHEMATOSUS [None]
